FAERS Safety Report 7645360-3 (Version None)
Quarter: 2011Q3

REPORT INFORMATION
  Report Type: 
  Country: None (occurrence: None)
  Receive Date: 20110729
  Receipt Date: 20110719
  Transmission Date: 20111222
  Serious: Yes (Hospitalization, Other)
  Sender: FDA-Public Use
  Company Number: US-BAYER-201032080NA

PATIENT
  Age: 30 Year
  Sex: Female
  Weight: 74.1 kg

DRUGS (8)
  1. YASMIN [Suspect]
     Indication: CONTRACEPTION
     Dosage: UNK
     Dates: start: 20080401, end: 20080801
  2. NAPROXEN [Concomitant]
     Indication: PAIN MANAGEMENT
     Dosage: UNK UNK, PRN
     Dates: start: 20020101
  3. DETROL [Concomitant]
     Dosage: UNK UNK, QD
     Route: 048
  4. XANAX [Concomitant]
     Indication: ANXIETY
     Dosage: 1 MG, TID
     Route: 048
     Dates: start: 20080501
  5. EFFEXOR XR [Concomitant]
     Indication: DEPRESSION
     Dosage: 225 MG, CONT
     Route: 048
     Dates: start: 20080201, end: 20080801
  6. PRILOSEC [Concomitant]
     Dosage: 40 MG, BID
  7. IBUPROFEN [Concomitant]
     Indication: PAIN
     Dosage: UNK UNK, PRN
     Route: 048
     Dates: start: 20080201, end: 20080801
  8. FLUCONAZOLE [Concomitant]
     Dosage: 150 MG, UNK
     Route: 048
     Dates: start: 20080501

REACTIONS (2)
  - CHOLECYSTITIS CHRONIC [None]
  - PAIN [None]
